FAERS Safety Report 7487972-6 (Version None)
Quarter: 2011Q2

REPORT INFORMATION
  Report Type: 
  Country: None (occurrence: None)
  Receive Date: 20110518
  Receipt Date: 20110516
  Transmission Date: 20111010
  Serious: Yes (Other)
  Sender: FDA-Public Use
  Company Number: US-PFIZER INC-2011105204

PATIENT
  Sex: Female

DRUGS (1)
  1. CHANTIX [Suspect]
     Indication: SMOKING CESSATION THERAPY
     Dosage: 0.5 MG, 1X/DAY
     Route: 048
     Dates: start: 20110303, end: 20110317

REACTIONS (8)
  - MUSCLE SPASMS [None]
  - DROOLING [None]
  - TREMOR [None]
  - DYSGEUSIA [None]
  - GRIEF REACTION [None]
  - SALIVARY HYPERSECRETION [None]
  - ABDOMINAL DISCOMFORT [None]
  - HYPOAESTHESIA [None]
